FAERS Safety Report 4308069-X (Version None)
Quarter: 2004Q1

REPORT INFORMATION
  Report Type: 
  Country: None (occurrence: None)
  Receive Date: 20040301
  Receipt Date: 20030424
  Transmission Date: 20041129
  Serious: No
  Sender: FDA-Public Use
  Company Number: US-BRISTOL-MYERS SQUIBB COMPANY-12253019

PATIENT
  Age: 77 Year
  Sex: Male
  Weight: 77 kg

DRUGS (5)
  1. GLUCOPHAGE [Suspect]
     Indication: DIABETES MELLITUS
     Dosage: DURATION OF THERAPY: ^YEARS^
     Route: 048
  2. AVAPRO [Concomitant]
  3. TRIAMTERENE [Concomitant]
  4. MULTIVITAMIN [Concomitant]
  5. POTASSIUM [Concomitant]

REACTIONS (2)
  - DYSGEUSIA [None]
  - NERVOUSNESS [None]
